FAERS Safety Report 21010843 (Version 1)
Quarter: 2022Q2

REPORT INFORMATION
  Report Type: Other
  Country: CN (occurrence: None)
  Receive Date: 20220627
  Receipt Date: 20220627
  Transmission Date: 20220720
  Serious: Yes (Other)
  Sender: FDA-Public Use
  Company Number: CN-ROCHE-3126292

PATIENT

DRUGS (2)
  1. BEVACIZUMAB [Suspect]
     Active Substance: BEVACIZUMAB
     Indication: Metastases to central nervous system
     Dosage: BEVACIZUMAB (FORM-100 MG VIAL), INTRAVENOUS INFUSION WAS ADDED INTO NORMAL SALINE, ONCE EVERY 2 WEEK
     Route: 042
  2. TEMOZOLOMIDE [Suspect]
     Active Substance: TEMOZOLOMIDE
     Indication: Metastases to central nervous system
     Dosage: 150 MG PER SQUARE METER PER DAY FOR 5 DAYS ACCORDING TO BODY SURFACE AREA, WITH ONE CYCLE EVERY 28 D
     Route: 048

REACTIONS (1)
  - Myelosuppression [Unknown]
